FAERS Safety Report 11098268 (Version 3)
Quarter: 2015Q2

REPORT INFORMATION
  Report Type: Spontaneous
  Country: DE (occurrence: DE)
  Receive Date: 20150507
  Receipt Date: 20150623
  Transmission Date: 20150821
  Serious: Yes (Other)
  Sender: FDA-Public Use
  Company Number: DE-BAUSCH-BL-2015-012870

PATIENT
  Age: 74 Year
  Sex: Male

DRUGS (1)
  1. ZYCLARA [Suspect]
     Active Substance: IMIQUIMOD
     Indication: ACTINIC KERATOSIS
     Dosage: REGULARLY 2 ON - 2 OFF - 2 ON
     Route: 062
     Dates: start: 20150107, end: 201502

REACTIONS (4)
  - Red blood cell count decreased [Unknown]
  - Platelet count decreased [Unknown]
  - Myelodysplastic syndrome [Unknown]
  - White blood cell count decreased [Unknown]

NARRATIVE: CASE EVENT DATE: 201503
